FAERS Safety Report 8334118 (Version 2)
Quarter: 2013Q4

REPORT INFORMATION
  Report Type: Spontaneous
  Country: JP (occurrence: None)
  Receive Date: 20120104
  Receipt Date: 20131224
  Transmission Date: 20140711
  Serious: Yes (Congenital Anomaly, Other)
  Sender: FDA-Public Use
  Company Number: JP-20110041

PATIENT
  Sex: Male

DRUGS (1)
  1. LIPIODOL ULTRA FLUIDE (ETHIODIZED OIL) [Suspect]
     Indication: ACCIDENTAL EXPOSURE TO PRODUCT BY CHILD
     Dosage: (10 ML, 1 D)

REACTIONS (10)
  - Goitre [None]
  - Hypothyroidism [None]
  - Caesarean section [None]
  - Foetal exposure during pregnancy [None]
  - Contrast media reaction [None]
  - Maternal drugs affecting foetus [None]
  - Caesarean section [None]
  - Brow presentation [None]
  - Congenital hypothyroidism [None]
  - Goitre congenital [None]
